FAERS Safety Report 4707987-8 (Version None)
Quarter: 2005Q3

REPORT INFORMATION
  Report Type: 
  Country: None (occurrence: None)
  Receive Date: 20050705
  Receipt Date: 20050705
  Transmission Date: 20060218
  Serious: Yes (Other)
  Sender: FDA-Public Use
  Company Number: None

PATIENT
  Age: 77 Year
  Sex: Male
  Weight: 74 kg

DRUGS (1)
  1. TIMOLOL XE 0.5% QD [Suspect]
     Indication: GLAUCOMA
     Dosage: GTT 1 QD
     Route: 047

REACTIONS (2)
  - SINUS ARREST [None]
  - SINUS BRADYCARDIA [None]
